FAERS Safety Report 24683475 (Version 4)
Quarter: 2025Q3

REPORT INFORMATION
  Report Type: Spontaneous
  Country: EU (occurrence: EU)
  Receive Date: 20241201
  Receipt Date: 20250730
  Transmission Date: 20251020
  Serious: Yes (Death, Hospitalization, Other)
  Sender: NOVO NORDISK
  Company Number: EU-NOVOPROD-1322147

PATIENT
  Age: 60 Year
  Sex: Male

DRUGS (1)
  1. WEGOVY [Suspect]
     Active Substance: SEMAGLUTIDE
     Indication: Obesity
     Route: 058

REACTIONS (3)
  - Myocardial infarction [Fatal]
  - Impaired gastric emptying [Fatal]
  - Brain death [Unknown]

NARRATIVE: CASE EVENT DATE: 20241101
